FAERS Safety Report 8068196-0 (Version None)
Quarter: 2012Q1

REPORT INFORMATION
  Report Type: 
  Country: None (occurrence: None)
  Receive Date: 20120124
  Receipt Date: 20111003
  Transmission Date: 20120608
  Serious: No
  Sender: FDA-Public Use
  Company Number: US-AMGEN-USASP2011050980

PATIENT
  Age: 64 Year
  Sex: Female

DRUGS (2)
  1. PROLIA [Suspect]
     Indication: OSTEOPENIA
     Dosage: UNK UNK, Q6MO
     Dates: start: 20110927
  2. PREVACID [Concomitant]

REACTIONS (3)
  - NAUSEA [None]
  - HEADACHE [None]
  - PARAESTHESIA [None]
